FAERS Safety Report 7396959-3 (Version None)
Quarter: 2011Q1

REPORT INFORMATION
  Report Type: 
  Country: None (occurrence: None)
  Receive Date: 20110331
  Receipt Date: 20110331
  Transmission Date: 20110831
  Serious: Yes (Other)
  Sender: FDA-Public Use
  Company Number: None

PATIENT
  Age: 51 Year
  Sex: Female
  Weight: 79.3795 kg

DRUGS (3)
  1. NEURONTIN [Suspect]
     Indication: ANXIETY
     Dosage: 1-5 DAILY ORALLY
     Route: 048
     Dates: start: 20110206, end: 20110309
  2. NEURONTIN [Suspect]
     Indication: MIGRAINE
     Dosage: 1-5 DAILY ORALLY
     Route: 048
     Dates: start: 20110206, end: 20110309
  3. NEURONTIN [Suspect]
     Indication: FIBROMYALGIA
     Dosage: 1-5 DAILY ORALLY
     Route: 048
     Dates: start: 20110206, end: 20110309

REACTIONS (6)
  - INSOMNIA [None]
  - MIGRAINE [None]
  - VISUAL IMPAIRMENT [None]
  - NAUSEA [None]
  - THINKING ABNORMAL [None]
  - ABNORMAL DREAMS [None]
